FAERS Safety Report 5132681-1 (Version None)
Quarter: 2006Q4

REPORT INFORMATION
  Report Type: 
  Country: None (occurrence: None)
  Receive Date: 20061017
  Receipt Date: 20061006
  Transmission Date: 20070319
  Serious: Yes (Life-Threatening, Other)
  Sender: FDA-Public Use
  Company Number: GXKR2006GB06247

PATIENT
  Age: 71 Year
  Sex: Female
  Weight: 91 kg

DRUGS (6)
  1. ASPIRIN [Suspect]
  2. LANSOPRAZOLE [Suspect]
     Indication: MYOCARDIAL INFARCTION
     Dosage: 30 MG, ORAL
     Route: 048
     Dates: start: 20060401, end: 20060901
  3. AMLODIPINE [Concomitant]
  4. BISOPROLOL FUMARATE [Concomitant]
  5. PERINDOPRIL ERBUMINE [Concomitant]
  6. SIMVASTATIN [Concomitant]

REACTIONS (5)
  - ABDOMINAL PAIN [None]
  - ARTHRALGIA [None]
  - DIPLOPIA [None]
  - MYALGIA [None]
  - STEVENS-JOHNSON SYNDROME [None]
